FAERS Safety Report 13752658 (Version 1)
Quarter: 2017Q3

REPORT INFORMATION
  Report Type: Spontaneous
  Country: US (occurrence: US)
  Receive Date: 20170713
  Receipt Date: 20170713
  Transmission Date: 20171127
  Serious: Yes (Death)
  Sender: FDA-Public Use
  Company Number: None

PATIENT
  Age: 68 Year
  Sex: Male

DRUGS (1)
  1. THALOMID [Suspect]
     Active Substance: THALIDOMIDE
     Indication: CONGENITAL GASTROINTESTINAL VESSEL ANOMALY
     Route: 048
     Dates: start: 20170525, end: 20170627

REACTIONS (3)
  - Pulseless electrical activity [None]
  - Cardiac arrest [None]
  - Unresponsive to stimuli [None]

NARRATIVE: CASE EVENT DATE: 20170627
